FAERS Safety Report 8064979-1 (Version None)
Quarter: 2012Q1

REPORT INFORMATION
  Report Type: 
  Country: None (occurrence: None)
  Receive Date: 20120124
  Receipt Date: 20120112
  Transmission Date: 20120608
  Serious: No
  Sender: FDA-Public Use
  Company Number: US-BIOGENIDEC-2012BI002189

PATIENT
  Age: 62 Year
  Sex: Female

DRUGS (1)
  1. TYSABRI [Suspect]
     Indication: MULTIPLE SCLEROSIS
     Route: 042
     Dates: start: 20090301

REACTIONS (16)
  - ADRENOCORTICAL INSUFFICIENCY ACUTE [None]
  - VOMITING [None]
  - CELLULITIS [None]
  - EAR INFECTION [None]
  - UPPER RESPIRATORY TRACT INFECTION [None]
  - FACIAL BONES FRACTURE [None]
  - PERIORBITAL HAEMATOMA [None]
  - VIRAL INFECTION [None]
  - CONCUSSION [None]
  - SINUSITIS [None]
  - LIGAMENT SPRAIN [None]
  - SKELETAL INJURY [None]
  - FUNGAL INFECTION [None]
  - MUSCLE SPASMS [None]
  - CYST RUPTURE [None]
  - MULTIPLE SCLEROSIS [None]
